FAERS Safety Report 6683099-1 (Version None)
Quarter: 2010Q2

REPORT INFORMATION
  Report Type: 
  Country: None (occurrence: None)
  Receive Date: 20100415
  Receipt Date: 20100412
  Transmission Date: 20101027
  Serious: Yes (Hospitalization)
  Sender: FDA-Public Use
  Company Number: PHHY2010MX22856

PATIENT
  Age: 73 Year
  Sex: Female

DRUGS (3)
  1. FEMARA [Suspect]
     Dosage: 1 TABLET (2.5 MG) PER DAY
     Route: 048
  2. ANTIHYPERTENSIVES [Concomitant]
     Indication: HYPERTENSION
  3. CHEMOTHERAPEUTICS NOS [Concomitant]

REACTIONS (2)
  - DRUG INEFFECTIVE [None]
  - SURGERY [None]
